FAERS Safety Report 8905641 (Version 1)
Quarter: 2012Q4

REPORT INFORMATION
  Report Type: Report from Study
  Country: CY (occurrence: CY)
  Receive Date: 20121113
  Receipt Date: 20121113
  Transmission Date: 20130627
  Serious: Yes (Hospitalization, Other)
  Sender: FDA-Public Use
  Company Number: CY-JNJFOC-20121106168

PATIENT
  Age: 12 Year
  Sex: Female

DRUGS (2)
  1. INFLIXIMAB, RECOMBINANT [Suspect]
     Indication: CROHN^S DISEASE
     Route: 042
  2. IMURAN [Suspect]
     Indication: CROHN^S DISEASE

REACTIONS (3)
  - Colectomy [Unknown]
  - Intestinal anastomosis [Unknown]
  - Red blood cell sedimentation rate increased [Unknown]
